FAERS Safety Report 9904090 (Version 1)
Quarter: 2014Q1

REPORT INFORMATION
  Report Type: Spontaneous
  Country: US (occurrence: US)
  Receive Date: 20140218
  Receipt Date: 20140218
  Transmission Date: 20141002
  Serious: No
  Sender: FDA-Public Use
  Company Number: US-BIOGENIDEC-2014BI012885

PATIENT
  Sex: Female

DRUGS (15)
  1. TECFIDERA [Suspect]
     Indication: PRODUCT USED FOR UNKNOWN INDICATION
  2. SENOKOT [Concomitant]
  3. GABAPENTIN [Concomitant]
  4. LAMICTAL [Concomitant]
  5. LINZESS [Concomitant]
  6. BISCOLAX [Concomitant]
  7. AMPYRA [Concomitant]
  8. VITAMIN D3 [Concomitant]
  9. ASPIRIN BUFF [Concomitant]
  10. RISPERDAL [Concomitant]
  11. SANCTURA [Concomitant]
  12. CALCIUM [Concomitant]
  13. COLACE [Concomitant]
  14. VALACYCLOVIR [Concomitant]
  15. METOPROLOL [Concomitant]

REACTIONS (2)
  - Palpitations [Unknown]
  - Diarrhoea [Unknown]
